FAERS Safety Report 13245692 (Version 1)
Quarter: 2017Q1

REPORT INFORMATION
  Report Type: Spontaneous
  Country: DE (occurrence: DE)
  Receive Date: 20170217
  Receipt Date: 20170217
  Transmission Date: 20170428
  Serious: No
  Sender: FDA-Public Use
  Company Number: DE-PERNIX THERAPEUTICS-2016PT000106

PATIENT

DRUGS (1)
  1. KEIMAX [Suspect]
     Active Substance: CEFTIBUTEN
     Indication: CHRONIC SINUSITIS
     Dosage: 400 MG, DAILY
     Route: 048
     Dates: start: 20160410, end: 20160413

REACTIONS (3)
  - Urticaria [Recovered/Resolved]
  - Pruritus generalised [Recovered/Resolved]
  - Rash generalised [Recovered/Resolved]

NARRATIVE: CASE EVENT DATE: 20160412
